FAERS Safety Report 19545767 (Version 3)
Quarter: 2021Q3

REPORT INFORMATION
  Report Type: Spontaneous
  Country: DE (occurrence: DE)
  Receive Date: 20210713
  Receipt Date: 20210722
  Transmission Date: 20211014
  Serious: Yes (Other)
  Sender: FDA-Public Use
  Company Number: DE-MYLANLABS-2021M1041230

PATIENT
  Age: 8 Year
  Sex: Female

DRUGS (2)
  1. CISPLATIN. [Suspect]
     Active Substance: CISPLATIN
     Indication: BRAIN TERATOMA
  2. CISPLATIN. [Suspect]
     Active Substance: CISPLATIN
     Indication: BRAIN NEOPLASM
     Dosage: 120 MILLIGRAM/SQ. METER, CYCLE (HIGH DOSE)
     Dates: start: 198312

REACTIONS (3)
  - Deafness bilateral [Unknown]
  - Overdose [Unknown]
  - Off label use [Unknown]
